FAERS Safety Report 24262998 (Version 1)
Quarter: 2024Q3

REPORT INFORMATION
  Report Type: Report from Study
  Country: US (occurrence: US)
  Receive Date: 20240829
  Receipt Date: 20240829
  Transmission Date: 20241017
  Serious: Yes (Hospitalization)
  Sender: ROCHE
  Company Number: US-ROCHE-3159885

PATIENT
  Age: 85 Year
  Sex: Male

DRUGS (9)
  1. CELLCEPT [Suspect]
     Active Substance: MYCOPHENOLATE MOFETIL
     Indication: Myasthenia gravis
     Dosage: TWO 500MG TABLETS IN AM AND THREE 500MG TABLETS IN PM
     Route: 048
  2. PREDNISONE [Concomitant]
     Active Substance: PREDNISONE
  3. ONDANSETRON [Concomitant]
     Active Substance: ONDANSETRON
  4. TRAZODONE [Concomitant]
     Active Substance: TRAZODONE HYDROCHLORIDE
  5. FLUTICASONE [Concomitant]
     Active Substance: FLUTICASONE
  6. ESCITALOPRAM [Concomitant]
     Active Substance: ESCITALOPRAM OXALATE
  7. ZINC [Concomitant]
     Active Substance: ZINC
  8. GLUCOSAMINE [Concomitant]
     Active Substance: GLUCOSAMINE
  9. OMEPRAZOLE [Concomitant]
     Active Substance: OMEPRAZOLE

REACTIONS (2)
  - Off label use [Unknown]
  - Influenza [Unknown]
